FAERS Safety Report 8786485 (Version 2)
Quarter: 2012Q4

REPORT INFORMATION
  Report Type: 
  Country: CA (occurrence: CA)
  Receive Date: 20120914
  Receipt Date: 20120919
  Transmission Date: 20130627
  Serious: Yes (Other)
  Sender: FDA-Public Use
  Company Number: CA-PFIZER INC-2012225523

PATIENT
  Age: 9 None
  Sex: Female

DRUGS (7)
  1. LIPITOR [Suspect]
     Dosage: UNK
  2. ATORVASTATIN CALCIUM [Suspect]
     Dosage: UNK
  3. METFORMIN [Concomitant]
     Dosage: UNK
  4. RAMIPRIL [Concomitant]
     Dosage: UNK
  5. DIAMICRON [Concomitant]
     Dosage: UNK
  6. BABY ASPIRIN [Concomitant]
     Dosage: UNK
  7. DIDROCAL [Concomitant]
     Dosage: UNK

REACTIONS (5)
  - Dementia Alzheimer^s type [Not Recovered/Not Resolved]
  - Memory impairment [Not Recovered/Not Resolved]
  - Confusional state [Not Recovered/Not Resolved]
  - Myalgia [Not Recovered/Not Resolved]
  - Pollakiuria [Not Recovered/Not Resolved]
